FAERS Safety Report 4524167-X (Version None)
Quarter: 2005Q1

REPORT INFORMATION
  Report Type: 
  Country: None (occurrence: None)
  Receive Date: 20041119
  Receipt Date: 20040826
  Transmission Date: 20050727
  Serious: No
  Sender: FDA-Public Use
  Company Number: 208693

PATIENT
  Age: 52 Year
  Sex: Female

DRUGS (1)
  1. RAPTIVA [Suspect]
     Indication: PSORIASIS
     Dosage: 0.8 ML,1/WEEK, SUBCUTANEOUS
     Route: 058

REACTIONS (3)
  - LYMPHOCYTE COUNT INCREASED [None]
  - PLATELET AGGREGATION [None]
  - WHITE BLOOD CELL COUNT INCREASED [None]
